FAERS Safety Report 11588625 (Version 1)
Quarter: 2015Q4

REPORT INFORMATION
  Report Type: Spontaneous
  Country: US (occurrence: None)
  Receive Date: 20151001
  Receipt Date: 20151001
  Transmission Date: 20160304
  Serious: Yes (Other)
  Sender: FDA-Public Use
  Company Number: None

PATIENT
  Age: 29 Year
  Sex: Female
  Weight: 113.4 kg

DRUGS (2)
  1. DAILY WOMANS VITAMIN-THE VITAMIN SHOPPE [Concomitant]
  2. DULERA [Suspect]
     Active Substance: FORMOTEROL FUMARATE DIHYDRATE\MOMETASONE FUROATE
     Indication: ASTHMA
     Dosage: 2 INHALATIONS
     Route: 055
     Dates: start: 20150908, end: 20150929

REACTIONS (4)
  - Chest pain [None]
  - Poisoning [None]
  - Asthma [None]
  - Back pain [None]

NARRATIVE: CASE EVENT DATE: 20150929
